FAERS Safety Report 8163741-9 (Version None)
Quarter: 2012Q1

REPORT INFORMATION
  Report Type: 
  Country: None (occurrence: None)
  Receive Date: 20120224
  Receipt Date: 20120221
  Transmission Date: 20120608
  Serious: No
  Sender: FDA-Public Use
  Company Number: US-BAYER-2012-017796

PATIENT
  Sex: Male

DRUGS (2)
  1. FLOMAX [Concomitant]
  2. STAXYN [Suspect]
     Indication: ERECTILE DYSFUNCTION
     Dosage: TOOK ONLY ONCE
     Route: 048

REACTIONS (1)
  - DYSPNOEA [None]
